FAERS Safety Report 6263406-4 (Version None)
Quarter: 2009Q3

REPORT INFORMATION
  Report Type: 
  Country: None (occurrence: None)
  Receive Date: 20090710
  Receipt Date: 20090213
  Transmission Date: 20100115
  Serious: No
  Sender: FDA-Public Use
  Company Number: A0757061A

PATIENT
  Age: 69 Year

DRUGS (6)
  1. FLOVENT [Suspect]
     Indication: ASTHMA
     Route: 055
     Dates: start: 19940101
  2. DEPAKOTE [Concomitant]
  3. TOPAMAX [Concomitant]
  4. FIORINAL W/CODEINE [Concomitant]
  5. NEXIUM [Concomitant]
  6. VITAMIN [Concomitant]

REACTIONS (3)
  - DRUG INEFFECTIVE [None]
  - DYSPNOEA [None]
  - PRODUCT QUALITY ISSUE [None]
